FAERS Safety Report 9981620 (Version 1)
Quarter: 2014Q1

REPORT INFORMATION
  Report Type: Spontaneous
  Country: US (occurrence: None)
  Receive Date: 20140131
  Receipt Date: 20140131
  Transmission Date: 20141002
  Serious: Yes (Other)
  Sender: FDA-Public Use
  Company Number: 096902

PATIENT
  Sex: Female
  Weight: 55.4 kg

DRUGS (4)
  1. KEPPRA [Suspect]
     Indication: CONVULSION
     Dosage: (DRUG STRENGHT: 500 MG)
     Dates: start: 2003, end: 20130805
  2. DILANTIN [Concomitant]
  3. CLINDAMYCIN [Concomitant]
  4. TRETINOIN [Concomitant]

REACTIONS (2)
  - Grand mal convulsion [None]
  - Migraine [None]
